FAERS Safety Report 25203242 (Version 2)
Quarter: 2025Q2

REPORT INFORMATION
  Report Type: Report from Study
  Country: US (occurrence: US)
  Receive Date: 20250416
  Receipt Date: 20250516
  Transmission Date: 20250717
  Serious: No
  Sender: JOHNSON AND JOHNSON
  Company Number: US-JNJFOC-20250362012

PATIENT
  Age: 64 Year
  Sex: Female

DRUGS (3)
  1. GUSELKUMAB [Suspect]
     Active Substance: GUSELKUMAB
     Indication: Psoriatic arthropathy
     Route: 058
     Dates: start: 20250221
  2. GUSELKUMAB [Suspect]
     Active Substance: GUSELKUMAB
     Indication: Psoriasis
     Route: 058
     Dates: start: 20250221
  3. GUSELKUMAB [Suspect]
     Active Substance: GUSELKUMAB
     Route: 058
     Dates: start: 20250221

REACTIONS (8)
  - Headache [Recovered/Resolved]
  - Fatigue [Recovered/Resolved]
  - Psoriasis [Unknown]
  - Needle issue [Unknown]
  - Injury associated with device [Unknown]
  - Product dose omission issue [Unknown]
  - Product leakage [Unknown]
  - Panic attack [Unknown]

NARRATIVE: CASE EVENT DATE: 20250221
